FAERS Safety Report 8450606-8 (Version None)
Quarter: 2012Q2

REPORT INFORMATION
  Report Type: 
  Country: None (occurrence: None)
  Receive Date: 20120620
  Receipt Date: 20120617
  Transmission Date: 20120825
  Serious: Yes (Life-Threatening, Hospitalization)
  Sender: FDA-Public Use
  Company Number: PHHY2012IL051942

PATIENT
  Age: 62 Year
  Sex: Male

DRUGS (1)
  1. EXJADE [Suspect]
     Indication: MYELODYSPLASTIC SYNDROME
     Route: 048

REACTIONS (5)
  - PROTHROMBIN TIME PROLONGED [None]
  - HEPATIC ENZYME INCREASED [None]
  - FEELING ABNORMAL [None]
  - SEPSIS [None]
  - INTERNATIONAL NORMALISED RATIO INCREASED [None]
